FAERS Safety Report 15729573 (Version 2)
Quarter: 2018Q4

REPORT INFORMATION
  Report Type: Spontaneous
  Country: US (occurrence: US)
  Receive Date: 20181217
  Receipt Date: 20181219
  Transmission Date: 20190205
  Serious: No
  Sender: FDA-Public Use
  Company Number: US-GLAXOSMITHKLINE-US2018223767

PATIENT
  Age: 57 Year
  Sex: Female

DRUGS (2)
  1. ABREVA [Suspect]
     Active Substance: DOCOSANOL
     Indication: RASH
     Dosage: UNK, TID
     Dates: start: 20181207
  2. ABREVA [Suspect]
     Active Substance: DOCOSANOL
     Dosage: UNK UNK, 1D
     Dates: start: 20181208

REACTIONS (4)
  - Lip swelling [Recovering/Resolving]
  - Off label use [Unknown]
  - Oral discomfort [Recovering/Resolving]
  - Product use in unapproved indication [Unknown]
